FAERS Safety Report 9049304 (Version 1)
Quarter: 2013Q1

REPORT INFORMATION
  Report Type: Spontaneous
  Country: JP (occurrence: JP)
  Receive Date: 20130205
  Receipt Date: 20130205
  Transmission Date: 20140127
  Serious: Yes (Death, Hospitalization)
  Sender: FDA-Public Use
  Company Number: JP-ASTRAZENECA-2012SE69921

PATIENT
  Age: 27087 Day
  Sex: Male

DRUGS (8)
  1. MEROPEN [Suspect]
     Indication: URINARY TRACT INFECTION
     Route: 042
     Dates: start: 20120818, end: 20120820
  2. RANITAC [Concomitant]
     Indication: GASTRIC ULCER
     Route: 048
  3. ATARAX [Concomitant]
     Indication: INSOMNIA
     Route: 048
  4. AMLODIN OD [Concomitant]
     Indication: HYPERTENSION
     Route: 048
  5. ALLELOCK [Concomitant]
     Indication: RASH
     Route: 048
     Dates: start: 20120717
  6. ASPHAGEN [Concomitant]
     Indication: RASH
     Route: 042
     Dates: start: 20120807
  7. NEUROTROPIN [Concomitant]
     Indication: RASH PRURITIC
     Route: 042
     Dates: start: 20120807
  8. CRAVIT [Concomitant]
     Indication: URINARY TRACT INFECTION
     Route: 048
     Dates: start: 20120817, end: 20120826

REACTIONS (1)
  - Infusion site thrombosis [Fatal]
